FAERS Safety Report 14873033 (Version 6)
Quarter: 2018Q3

REPORT INFORMATION
  Report Type: Report from Study
  Country: JP (occurrence: JP)
  Receive Date: 20180510
  Receipt Date: 20180719
  Transmission Date: 20181010
  Serious: Yes (Hospitalization)
  Sender: FDA-Public Use
  Company Number: JP-ROCHE-2116550

PATIENT
  Age: 67 Year
  Sex: Male
  Weight: 69 kg

DRUGS (16)
  1. MOSAPRIDE CITRATE [Concomitant]
     Active Substance: MOSAPRIDE CITRATE
     Route: 048
     Dates: start: 20180322, end: 20180419
  2. DEGARELIX ACETATE [Concomitant]
     Active Substance: DEGARELIX ACETATE
     Route: 058
     Dates: start: 20130314
  3. ENZALUTAMIDE [Suspect]
     Active Substance: ENZALUTAMIDE
     Route: 048
     Dates: start: 20180426
  4. GLICLAZIDE [Concomitant]
     Active Substance: GLICLAZIDE
     Route: 048
     Dates: end: 20180430
  5. DENOSUMAB [Concomitant]
     Active Substance: DENOSUMAB
     Route: 058
     Dates: start: 20180222
  6. BAKTAR [Concomitant]
     Active Substance: SULFAMETHOXAZOLE\TRIMETHOPRIM
     Route: 048
     Dates: start: 20180502, end: 20180616
  7. AMLODIPINE BESILATE [Concomitant]
     Active Substance: AMLODIPINE BESYLATE
     Route: 048
     Dates: end: 20180430
  8. MIGLITOL. [Concomitant]
     Active Substance: MIGLITOL
     Route: 048
     Dates: end: 20180430
  9. ATEZOLIZUMAB. [Suspect]
     Active Substance: ATEZOLIZUMAB
     Indication: HORMONE-REFRACTORY PROSTATE CANCER
     Dosage: MOST RECENT DOSE OF ATEZOLIZUMAB PRIOR TO AE (RASH MACULO?PAPULAR) ONSET RECEIVED ON 18 APR 2018 AT
     Route: 042
     Dates: start: 20180418
  10. SITAGLIPTIN PHOSPHATE [Concomitant]
     Active Substance: SITAGLIPTIN PHOSPHATE
     Dosage: HYDRATE
     Route: 048
     Dates: end: 20180430
  11. DENOTAS [Concomitant]
     Active Substance: CALCIUM CARBONATE\CHOLECALCIFEROL\MAGNESIUM CARBONATE
     Dosage: CHEWABLE COMBINATION TABLETS
     Route: 048
     Dates: start: 20171122, end: 20180430
  12. ENZALUTAMIDE [Suspect]
     Active Substance: ENZALUTAMIDE
     Indication: HORMONE-REFRACTORY PROSTATE CANCER
     Dosage: MOST RECENT DOSE OF SUSPECTED ENZALUTAMIDE PRIOR TO ONSET RECEIVED ON 26/APR/2018
     Route: 048
     Dates: start: 20180418
  13. ESOMEPRAZOLE MAGNESIUM. [Concomitant]
     Active Substance: ESOMEPRAZOLE MAGNESIUM
     Route: 048
     Dates: start: 20180501
  14. INSULIN DEGLUDEC [Concomitant]
     Active Substance: INSULIN DEGLUDEC
     Dosage: DOSE: 12 UNIT
     Route: 058
  15. ACETAMINOPHEN. [Concomitant]
     Active Substance: ACETAMINOPHEN
     Route: 048
     Dates: start: 20180428, end: 20180430
  16. REBAMIPIDE [Concomitant]
     Active Substance: REBAMIPIDE
     Route: 048
     Dates: start: 20180428, end: 20180430

REACTIONS (4)
  - Disseminated intravascular coagulation [Recovered/Resolved]
  - Multiple organ dysfunction syndrome [Recovered/Resolved]
  - Rash maculo-papular [Recovered/Resolved]
  - Stevens-Johnson syndrome [Recovered/Resolved]

NARRATIVE: CASE EVENT DATE: 20180426
